FAERS Safety Report 17564570 (Version 2)
Quarter: 2021Q1

REPORT INFORMATION
  Report Type: Spontaneous
  Country: US (occurrence: US)
  Receive Date: 20200320
  Receipt Date: 20210115
  Transmission Date: 20210419
  Serious: Yes (Other)
  Sender: FDA-Public Use
  Company Number: US-HBP-2020US020357

PATIENT
  Age: 42 Year
  Sex: Female

DRUGS (1)
  1. MECHLORETHAMINE [Suspect]
     Active Substance: MECHLORETHAMINE
     Indication: CUTANEOUS T-CELL LYMPHOMA STAGE II
     Dosage: UNK, 3/WEEK
     Route: 061

REACTIONS (4)
  - Lymphoma transformation [Unknown]
  - Lymphomatoid papulosis [Recovered/Resolved]
  - Off label use [Unknown]
  - Dermatitis [Unknown]
